FAERS Safety Report 5495501-1 (Version None)
Quarter: 2007Q4

REPORT INFORMATION
  Report Type: 
  Country: None (occurrence: None)
  Receive Date: 20071023
  Receipt Date: 20071009
  Transmission Date: 20080405
  Serious: Yes (Other)
  Sender: FDA-Public Use
  Company Number: 2007US002583

PATIENT
  Age: 49 Year
  Sex: Female

DRUGS (3)
  1. AMBISOME [Suspect]
     Indication: OFF LABEL USE
     Dosage: 50 MG, TOTAL DOSE, IV NOS
     Route: 042
     Dates: start: 20071005, end: 20071005
  2. AMIKACIN SULFATE [Concomitant]
  3. PIPERACILLIN SODIUM AND TAZOBACTAM SODIUM [Concomitant]

REACTIONS (3)
  - DYSPNOEA [None]
  - ERYTHEMA [None]
  - OXYGEN SATURATION DECREASED [None]
